FAERS Safety Report 25227692 (Version 1)
Quarter: 2025Q2

REPORT INFORMATION
  Report Type: Spontaneous
  Country: US (occurrence: US)
  Receive Date: 20250422
  Receipt Date: 20250422
  Transmission Date: 20250717
  Serious: No
  Sender: BRISTOL-MYERS SQUIBB COMPANY
  Company Number: US-BRISTOL-MYERS SQUIBB COMPANY-2025-059437

PATIENT
  Age: 82 Year
  Sex: Male

DRUGS (10)
  1. REVLIMID [Suspect]
     Active Substance: LENALIDOMIDE
     Indication: Plasma cell myeloma
     Route: 048
     Dates: start: 20250307
  2. AMLODIPINE [Concomitant]
     Active Substance: AMLODIPINE BESYLATE
  3. CALCIUM [Concomitant]
     Active Substance: CALCIUM
  4. DEXAMETHASONE [Concomitant]
     Active Substance: DEXAMETHASONE
  5. FLUTICASONE [Concomitant]
     Active Substance: FLUTICASONE
  6. HYDRALAZINE [Concomitant]
     Active Substance: HYDRALAZINE HYDROCHLORIDE
  7. LENALIDOMIDE [Concomitant]
     Active Substance: LENALIDOMIDE
  8. LIDOCAINE [Concomitant]
     Active Substance: LIDOCAINE
  9. NIFEDIPINE [Concomitant]
     Active Substance: NIFEDIPINE
  10. OYSTER SHELL [Concomitant]
     Active Substance: OSTREA EDULIS SHELL

REACTIONS (1)
  - Full blood count decreased [Unknown]
